FAERS Safety Report 17027823 (Version 1)
Quarter: 2019Q4

REPORT INFORMATION
  Report Type: Report from Study
  Country: None (occurrence: US)
  Receive Date: 20191113
  Receipt Date: 20191113
  Transmission Date: 20200122
  Serious: Yes (Other)
  Sender: FDA-Public Use
  Company Number: US-ABBVIE-19K-163-2994791-00

PATIENT
  Age: 42 Year
  Sex: Female

DRUGS (3)
  1. OPUS [Concomitant]
     Indication: PRODUCT USED FOR UNKNOWN INDICATION
  2. ORILISSA [Suspect]
     Active Substance: ELAGOLIX SODIUM
     Route: 048
  3. ORILISSA [Suspect]
     Active Substance: ELAGOLIX SODIUM
     Indication: PRODUCT USED FOR UNKNOWN INDICATION
     Route: 048

REACTIONS (4)
  - Thrombosis [Unknown]
  - Adverse drug reaction [Unknown]
  - Drug ineffective [Unknown]
  - Pain [Unknown]

NARRATIVE: CASE EVENT DATE: 20191106
